FAERS Safety Report 14381572 (Version 1)
Quarter: 2018Q1

REPORT INFORMATION
  Report Type: Other
  Country: US (occurrence: US)
  Receive Date: 20180112
  Receipt Date: 20180112
  Transmission Date: 20180509
  Serious: Yes (Death)
  Sender: FDA-Public Use
  Company Number: US-GENUS_LIFESCIENCES-USA-POI0580201800048

PATIENT
  Age: 89 Year
  Sex: Female

DRUGS (6)
  1. TRAZODONE [Suspect]
     Active Substance: TRAZODONE HYDROCHLORIDE
     Dates: end: 2016
  2. OXYCODONE HCL CAPSULES [Suspect]
     Active Substance: OXYCODONE HYDROCHLORIDE
     Dates: end: 2016
  3. LISINOPRIL. [Suspect]
     Active Substance: LISINOPRIL
     Dates: end: 2016
  4. PREDNISONE. [Suspect]
     Active Substance: PREDNISONE
     Dates: end: 2016
  5. METOPROLOL. [Suspect]
     Active Substance: METOPROLOL
     Dates: end: 2016
  6. CITALOPRAM [Suspect]
     Active Substance: CITALOPRAM HYDROBROMIDE
     Dates: end: 2016

REACTIONS (1)
  - Poisoning deliberate [Fatal]

NARRATIVE: CASE EVENT DATE: 2016
